FAERS Safety Report 11072402 (Version 1)
Quarter: 2015Q2

REPORT INFORMATION
  Report Type: Spontaneous
  Country: US (occurrence: None)
  Receive Date: 20150427
  Receipt Date: 20150427
  Transmission Date: 20150821
  Serious: Yes (Life-Threatening, Hospitalization)
  Sender: FDA-Public Use
  Company Number: None

PATIENT
  Age: 48 Year
  Sex: Female
  Weight: 68.04 kg

DRUGS (8)
  1. LAMISIL [Suspect]
     Active Substance: TERBINAFINE HYDROCHLORIDE
     Indication: FUNGAL INFECTION
     Dosage: 1 PILL
     Route: 048
     Dates: start: 20130201, end: 20130202
  2. TYLENOL ARTHRITIS PAIN [Concomitant]
     Active Substance: ACETAMINOPHEN
  3. LAMISIL [Suspect]
     Active Substance: TERBINAFINE HYDROCHLORIDE
     Indication: NAIL INFECTION
     Dosage: 1 PILL
     Route: 048
     Dates: start: 20130201, end: 20130202
  4. FAMOTIDINE (PEPCID) [Concomitant]
  5. MAXALT [Concomitant]
     Active Substance: RIZATRIPTAN BENZOATE
  6. ADVIL [Concomitant]
     Active Substance: IBUPROFEN
  7. MOTRIN [Concomitant]
     Active Substance: IBUPROFEN
  8. ALLEGRA OTC (FEXOFENADINE HCL) [Concomitant]

REACTIONS (1)
  - Pancreatitis [None]

NARRATIVE: CASE EVENT DATE: 20130213
